APPROVED DRUG PRODUCT: EMLA
Active Ingredient: LIDOCAINE; PRILOCAINE
Strength: 2.5%;2.5%
Dosage Form/Route: DISC;TOPICAL
Application: N020962 | Product #001
Applicant: ASTRAZENECA LP
Approved: Feb 4, 1998 | RLD: No | RS: No | Type: DISCN